FAERS Safety Report 5803547-6 (Version None)
Quarter: 2008Q3

REPORT INFORMATION
  Report Type: 
  Country: None (occurrence: None)
  Receive Date: 20080708
  Receipt Date: 20080625
  Transmission Date: 20090109
  Serious: Yes (Hospitalization)
  Sender: FDA-Public Use
  Company Number: DE-ELI_LILLY_AND_COMPANY-DE200705002715

PATIENT
  Sex: Female
  Weight: 90.7 kg

DRUGS (12)
  1. HUMATROPE [Suspect]
     Indication: HYPOPITUITARISM
     Dosage: 0.3 UNK, UNK
     Dates: start: 19950101
  2. HYDROCORTISONE [Concomitant]
     Indication: HYPOPITUITARISM
     Dosage: 25 MG, UNK
  3. LEVOTHYROXINE SODIUM [Concomitant]
     Indication: HYPOPITUITARISM
     Dosage: 100 UG, UNK
  4. LASIX [Concomitant]
     Indication: CONGENITAL DERMAL SINUS
     Dosage: 50 MG, UNK
  5. SIFROL [Concomitant]
     Indication: RESTLESS LEGS SYNDROME
     Dosage: 21 MG, UNK
  6. ARTHROTEC [Concomitant]
     Indication: OSTEOARTHRITIS
     Dosage: 20 MG, UNK
  7. SIMVASTATIN [Concomitant]
     Indication: HYPERCHOLESTEROLAEMIA
     Dosage: 40 MG, UNK
  8. MIRTAZAPINE [Concomitant]
     Indication: SLEEP DISORDER
     Dosage: 15 MG, UNK
  9. PANTOPRAZOLE SODIUM [Concomitant]
     Indication: HYPERCHLORHYDRIA
     Dosage: 40 MG, UNK
  10. TRACLEER [Concomitant]
     Indication: PULMONARY HYPERTENSION
     Dosage: 125 MG, UNK
  11. SEREVENT [Concomitant]
     Indication: OBSTRUCTIVE AIRWAYS DISORDER
  12. MARCUMAR [Concomitant]
     Indication: THROMBOSIS PROPHYLAXIS
     Dosage: UNK, AS NEEDED

REACTIONS (4)
  - DYSPNOEA AT REST [None]
  - DYSPNOEA EXERTIONAL [None]
  - PULMONARY HYPERTENSION [None]
  - SYSTEMIC SCLEROSIS [None]
